FAERS Safety Report 24861801 (Version 8)
Quarter: 2025Q4

REPORT INFORMATION
  Report Type: Other
  Country: US (occurrence: US)
  Receive Date: 20250120
  Receipt Date: 20251231
  Transmission Date: 20260117
  Serious: No
  Sender: TRAVERE THERAPEUTICS
  Company Number: US-TRAVERE-2024TVT01377

PATIENT
  Age: 44 Year
  Sex: Female

DRUGS (3)
  1. FILSPARI [Suspect]
     Active Substance: SPARSENTAN
     Indication: IgA nephropathy
     Route: 048
  2. FILSPARI [Suspect]
     Active Substance: SPARSENTAN
     Dosage: 30-AUG-2026
     Route: 048
     Dates: start: 202410
  3. FILSPARI [Suspect]
     Active Substance: SPARSENTAN
     Route: 048

REACTIONS (14)
  - Abdominal pain upper [Unknown]
  - Nausea [None]
  - Arthralgia [None]
  - Chest pain [None]
  - Muscle fatigue [Unknown]
  - Product dose omission issue [Unknown]
  - Headache [None]
  - Product administration error [Unknown]
  - Poor peripheral circulation [Unknown]
  - Hypoaesthesia [Unknown]
  - Pruritus [None]
  - Dry skin [Unknown]
  - Weight increased [Unknown]
  - COVID-19 [Unknown]

NARRATIVE: CASE EVENT DATE: 20241001
